FAERS Safety Report 6312057-1 (Version None)
Quarter: 2009Q3

REPORT INFORMATION
  Report Type: 
  Country: None (occurrence: None)
  Receive Date: 20090813
  Receipt Date: 20090813
  Transmission Date: 20100115
  Serious: Yes (Other)
  Sender: FDA-Public Use
  Company Number: None

PATIENT
  Age: 5 Year
  Sex: Male
  Weight: 16.3295 kg

DRUGS (1)
  1. SINGULAIR [Suspect]
     Indication: BRONCHIAL HYPERREACTIVITY
     Dosage: 1 TAB DAILY PO
     Route: 048
     Dates: start: 20090722, end: 20090811

REACTIONS (6)
  - ABNORMAL BEHAVIOUR [None]
  - AGGRESSION [None]
  - AGITATION [None]
  - PHYSICAL ASSAULT [None]
  - SCREAMING [None]
  - SUICIDAL BEHAVIOUR [None]
